FAERS Safety Report 15027042 (Version 3)
Quarter: 2018Q2

REPORT INFORMATION
  Report Type: Spontaneous
  Country: US (occurrence: US)
  Receive Date: 20180619
  Receipt Date: 20180628
  Transmission Date: 20180711
  Serious: Yes (Death, Hospitalization)
  Sender: FDA-Public Use
  Company Number: US-JNJFOC-20180609592

PATIENT
  Age: 72 Year
  Sex: Male

DRUGS (3)
  1. FERROUS SULFATE. [Concomitant]
     Active Substance: FERROUS SULFATE
  2. XANAX [Concomitant]
     Active Substance: ALPRAZOLAM
  3. IMBRUVICA [Suspect]
     Active Substance: IBRUTINIB
     Indication: CHRONIC LYMPHOCYTIC LEUKAEMIA
     Route: 048
     Dates: start: 20180510

REACTIONS (5)
  - Off label use [Unknown]
  - Death [Fatal]
  - Pneumonia [Unknown]
  - Incorrect dose administered [Unknown]
  - Disease progression [Unknown]

NARRATIVE: CASE EVENT DATE: 20180510
